FAERS Safety Report 5645550-5 (Version None)
Quarter: 2008Q1

REPORT INFORMATION
  Report Type: 
  Country: None (occurrence: None)
  Receive Date: 20080229
  Receipt Date: 20080221
  Transmission Date: 20080703
  Serious: Yes (Death)
  Sender: FDA-Public Use
  Company Number: US-ROCHE-533766

PATIENT
  Age: 52 Year
  Sex: Male
  Weight: 86.6 kg

DRUGS (5)
  1. PEG-INTERFERON ALFA 2A (RO 25-8310) [Suspect]
     Route: 058
     Dates: start: 20070417, end: 20071112
  2. RIBAVIRIN [Suspect]
     Route: 048
     Dates: start: 20070417, end: 20071031
  3. XANAX [Concomitant]
     Dates: start: 20071116
  4. RESTORIL [Concomitant]
     Dosage: GIVEN AT NIGHT (HS).
     Dates: start: 20070824
  5. PROTONIX [Concomitant]
     Route: 048
     Dates: start: 20070717

REACTIONS (1)
  - DEATH [None]
